FAERS Safety Report 8122637-9 (Version None)
Quarter: 2012Q1

REPORT INFORMATION
  Report Type: 
  Country: None (occurrence: None)
  Receive Date: 20120208
  Receipt Date: 20120126
  Transmission Date: 20120608
  Serious: Yes (Hospitalization)
  Sender: FDA-Public Use
  Company Number: JP-NAPPMUNDI-MAG-2012-0002031

PATIENT
  Age: 70 Year
  Sex: Female
  Weight: 48 kg

DRUGS (16)
  1. RHUBARB DRY EXTRACT [Concomitant]
     Indication: CONSTIPATION
     Dosage: UNK
     Dates: start: 20111012
  2. POSTERISAN FORTE                   /01567801/ [Concomitant]
     Indication: HAEMORRHOIDS
     Dosage: UNK
     Dates: start: 20111115
  3. CYCLOPHOSPHAMIDE [Suspect]
     Indication: NON-HODGKIN'S LYMPHOMA
     Dosage: 750 MG, UNK
     Route: 042
     Dates: start: 20111019, end: 20111117
  4. PANTOSIN [Concomitant]
     Indication: CONSTIPATION
     Dosage: UNK
     Dates: start: 20100813
  5. PREDNISONE TAB [Suspect]
     Indication: NON-HODGKIN'S LYMPHOMA
     Dosage: 40 MG, UNK
     Route: 048
  6. LANSOPRAZOLE [Concomitant]
     Indication: GASTRITIS
     Dosage: UNK
     Dates: start: 20101029
  7. MAGMITT [Concomitant]
     Indication: CONSTIPATION
     Dosage: UNK
     Dates: start: 20100813
  8. LIVOSTIN [Concomitant]
  9. RITUXIMAB [Suspect]
     Indication: NON-HODGKIN'S LYMPHOMA
     Dosage: 375 MG, UNK
     Route: 042
     Dates: start: 20111019, end: 20111117
  10. VINCRISTINE SULFATE [Suspect]
  11. SELBEX [Concomitant]
     Indication: GASTRITIS
     Dosage: UNK
     Dates: start: 20100727
  12. PURSENNID                          /00142207/ [Concomitant]
     Indication: CONSTIPATION
     Dosage: UNK
     Dates: start: 20111012
  13. LENDORMIN [Concomitant]
     Indication: INSOMNIA
     Dosage: UNK
     Dates: start: 20100822
  14. OXYCODONE HCL [Suspect]
     Indication: CANCER PAIN
     Dosage: UNK MG, UNK
     Route: 048
     Dates: start: 20111012
  15. INOTUZUMAB OZOGAMICIN [Suspect]
     Indication: NON-HODGKIN'S LYMPHOMA
     Dosage: 0.8 MG, UNK
     Route: 042
     Dates: start: 20111020, end: 20111118
  16. HYALEIN [Concomitant]
     Indication: CONJUNCTIVITIS
     Dosage: UNK

REACTIONS (1)
  - UPPER GASTROINTESTINAL HAEMORRHAGE [None]
